FAERS Safety Report 14486490 (Version 1)
Quarter: 2018Q1

REPORT INFORMATION
  Report Type: Spontaneous
  Country: US (occurrence: US)
  Receive Date: 20180203
  Receipt Date: 20180203
  Transmission Date: 20180509
  Serious: Yes (Disabling)
  Sender: FDA-Public Use
  Company Number: None

PATIENT
  Age: 61 Year
  Weight: 77.4 kg

DRUGS (2)
  1. LEVOFLOXACIN. [Suspect]
     Active Substance: LEVOFLOXACIN
  2. VANCOMYCIN [Suspect]
     Active Substance: VANCOMYCIN

REACTIONS (5)
  - Paraesthesia [None]
  - Drug ineffective [None]
  - Hypoaesthesia [None]
  - Nervous system disorder [None]
  - Muscle twitching [None]

NARRATIVE: CASE EVENT DATE: 20171108
